FAERS Safety Report 14693071 (Version 3)
Quarter: 2018Q2

REPORT INFORMATION
  Report Type: Spontaneous
  Country: CZ (occurrence: CZ)
  Receive Date: 20180329
  Receipt Date: 20180424
  Transmission Date: 20180711
  Serious: Yes (Death, Other)
  Sender: FDA-Public Use
  Company Number: PHHY2018CZ055215

PATIENT
  Age: 66 Year
  Sex: Male

DRUGS (1)
  1. COSENTYX [Suspect]
     Active Substance: SECUKINUMAB
     Indication: PSORIATIC ARTHROPATHY
     Route: 065

REACTIONS (30)
  - Renal cyst [Unknown]
  - Subcutaneous abscess [Unknown]
  - Osteopenia [Unknown]
  - Cholelithiasis [Unknown]
  - Lung disorder [Unknown]
  - Condition aggravated [Unknown]
  - Brain injury [Unknown]
  - Cardiac arrest [Unknown]
  - Liver disorder [Unknown]
  - Aphasia [Unknown]
  - Pulmonary oedema [Unknown]
  - Renal disorder [Unknown]
  - Mydriasis [Unknown]
  - Calculus prostatic [Unknown]
  - Lymphadenopathy [Unknown]
  - Hypotonia [Unknown]
  - Portal vein dilatation [Unknown]
  - Pancreatitis acute [Unknown]
  - Renal failure [Unknown]
  - Death [Fatal]
  - Diabetic nephropathy [Unknown]
  - Hyperkalaemia [Unknown]
  - Proteinuria [Unknown]
  - Unresponsive to stimuli [Unknown]
  - Hepatomegaly [Unknown]
  - Varicose vein [Unknown]
  - Sepsis [Unknown]
  - Gallbladder polyp [Unknown]
  - Nervous system disorder [Unknown]
  - Depressed level of consciousness [Unknown]

NARRATIVE: CASE EVENT DATE: 20171205
